FAERS Safety Report 23433341 (Version 1)
Quarter: 2024Q1

REPORT INFORMATION
  Report Type: Spontaneous
  Country: US (occurrence: None)
  Receive Date: 20240123
  Receipt Date: 20240123
  Transmission Date: 20240409
  Serious: Yes (Other)
  Sender: FDA-Public Use
  Company Number: None

PATIENT
  Age: 78 Year
  Sex: Female
  Weight: 62.1 kg

DRUGS (8)
  1. REVLIMID [Suspect]
     Active Substance: LENALIDOMIDE
     Indication: Plasma cell myeloma
     Dosage: OTHER FREQUENCY : QD FOR 21 ON/7 OFF;?
     Route: 048
     Dates: start: 20220613, end: 20231101
  2. COMPAZINE [Concomitant]
     Active Substance: PROCHLORPERAZINE MALEATE
  3. DEXAMETHASONE [Concomitant]
     Active Substance: DEXAMETHASONE
  4. LISINOPRIL [Concomitant]
     Active Substance: LISINOPRIL
  5. METHOCARBAMOL [Concomitant]
     Active Substance: METHOCARBAMOL
  6. MIRALAX [Concomitant]
     Active Substance: POLYETHYLENE GLYCOL 3350
  7. PAROXETINE [Concomitant]
     Active Substance: PAROXETINE
  8. TRAMADOL [Concomitant]
     Active Substance: TRAMADOL\TRAMADOL HYDROCHLORIDE

REACTIONS (2)
  - Fatigue [None]
  - Neutropenia [None]

NARRATIVE: CASE EVENT DATE: 20231031
